FAERS Safety Report 4401654-6 (Version None)
Quarter: 2004Q3

REPORT INFORMATION
  Report Type: 
  Country: None (occurrence: None)
  Receive Date: 20040719
  Receipt Date: 20040706
  Transmission Date: 20050211
  Serious: Yes (Hospitalization)
  Sender: FDA-Public Use
  Company Number: AT-ROCHE-373417

PATIENT
  Age: 43 Year
  Sex: Female
  Weight: 65 kg

DRUGS (5)
  1. PEG-INTERFERON ALFA 2A (RO 25-8310) [Suspect]
     Route: 058
     Dates: start: 20040109, end: 20040626
  2. RIBAVIRIN [Suspect]
     Route: 048
     Dates: start: 20040109, end: 20040702
  3. SEROXAT [Concomitant]
     Dates: start: 20040109
  4. THYREX [Concomitant]
     Dates: start: 20040109
  5. PANTOGAR [Concomitant]
     Dates: start: 20040518

REACTIONS (1)
  - PERIANAL ABSCESS [None]
